FAERS Safety Report 14648338 (Version 1)
Quarter: 2018Q1

REPORT INFORMATION
  Report Type: Spontaneous
  Country: GB (occurrence: GB)
  Receive Date: 20180316
  Receipt Date: 20180316
  Transmission Date: 20180509
  Serious: Yes (Other)
  Sender: FDA-Public Use
  Company Number: GB-MYLANLABS-2018M1009162

PATIENT
  Age: 37 Year
  Sex: Male

DRUGS (3)
  1. FLUPHENAZINE DECANOATE. [Concomitant]
     Active Substance: FLUPHENAZINE DECANOATE
     Indication: SCHIZOPHRENIA
     Dosage: 100 MG, Q2W
     Route: 030
     Dates: start: 20171220, end: 20180104
  2. CLOZARIL [Suspect]
     Active Substance: CLOZAPINE
     Indication: SCHIZOPHRENIA
     Dosage: 300 MG, QD
     Route: 048
     Dates: start: 20180108, end: 20180207
  3. FLUPHENAZINE DECANOATE. [Concomitant]
     Active Substance: FLUPHENAZINE DECANOATE
     Dosage: 125 MG, Q2W
     Route: 030
     Dates: start: 20170320, end: 20171220

REACTIONS (8)
  - Delusion [Unknown]
  - Refusal of examination [Unknown]
  - Incorrect route of drug administration [Unknown]
  - Refusal of treatment by patient [Unknown]
  - Eosinophilia [Not Recovered/Not Resolved]
  - Lower respiratory tract infection [Unknown]
  - Ill-defined disorder [Unknown]
  - White blood cell count increased [Recovered/Resolved]

NARRATIVE: CASE EVENT DATE: 2018
